FAERS Safety Report 12700906 (Version 1)
Quarter: 2016Q3

REPORT INFORMATION
  Report Type: Spontaneous
  Country: US (occurrence: None)
  Receive Date: 20160830
  Receipt Date: 20160830
  Transmission Date: 20161109
  Serious: Yes (Hospitalization)
  Sender: FDA-Public Use
  Company Number: None

PATIENT
  Age: 79 Year
  Sex: Female
  Weight: 31.75 kg

DRUGS (1)
  1. COMFORT SHIELD BARRIER [Suspect]
     Active Substance: DIMETHICONE
     Indication: INFECTION PROPHYLAXIS
     Dosage: 24 PACK EVERY 8 HOURS APPLIED TO A SURFACE, USUALLY THE SKIN
     Route: 061

REACTIONS (1)
  - Urinary tract infection [None]

NARRATIVE: CASE EVENT DATE: 20160730
